FAERS Safety Report 13805758 (Version 3)
Quarter: 2017Q4

REPORT INFORMATION
  Report Type: Report from Study
  Country: JP (occurrence: JP)
  Receive Date: 20170728
  Receipt Date: 20171124
  Transmission Date: 20180320
  Serious: Yes (Death, Life-Threatening, Hospitalization)
  Sender: FDA-Public Use
  Company Number: JP-VIFOR (INTERNATIONAL) INC.-VIT-2017-00689

PATIENT
  Age: 66 Year
  Sex: Male
  Weight: 63.5 kg

DRUGS (12)
  1. REGPARA [Concomitant]
     Active Substance: CINACALCET HYDROCHLORIDE
     Route: 048
  2. ALFAROL [Concomitant]
     Active Substance: ALFACALCIDOL
     Route: 048
  3. PROMAC D [Concomitant]
     Active Substance: POLAPREZINC
     Route: 048
  4. ARTIST [Concomitant]
     Active Substance: CARVEDILOL
     Route: 048
  5. FESIN [Concomitant]
     Active Substance: IRON SUCROSE
     Dates: end: 20160831
  6. PLETAAL [Concomitant]
     Active Substance: CILOSTAZOL
     Route: 048
  7. VANCOMYCIN [Concomitant]
     Active Substance: VANCOMYCIN
     Indication: INFECTION
     Dates: start: 20161223, end: 20161223
  8. VELPHORO [Suspect]
     Active Substance: FERRIC OXYHYDROXIDE
     Indication: HYPERPHOSPHATAEMIA
     Dosage: 6 TABLETS IN 3 DIVIDED DOSES
     Route: 048
     Dates: start: 20160613, end: 20160626
  9. FIRSTCIN [Concomitant]
     Active Substance: CEFOZOPRAN HYDROCHLORIDE
     Indication: INFECTION
     Dates: start: 20161226, end: 20170109
  10. VELPHORO [Suspect]
     Active Substance: FERRIC OXYHYDROXIDE
     Dosage: 2 TABLETS IN 2 DIVIDED DOSES
     Route: 048
     Dates: start: 20160627, end: 20160711
  11. ALFAROL [Concomitant]
     Active Substance: ALFACALCIDOL
     Route: 048
  12. ZYLORIC [Concomitant]
     Active Substance: ALLOPURINOL
     Route: 048

REACTIONS (6)
  - Hepatic cyst infection [Fatal]
  - Renal cyst infection [Fatal]
  - C-reactive protein increased [Unknown]
  - Diarrhoea [Recovered/Resolved]
  - Faeces discoloured [Not Recovered/Not Resolved]
  - White blood cell count increased [Unknown]

NARRATIVE: CASE EVENT DATE: 20160615
